FAERS Safety Report 5902349-X (Version None)
Quarter: 2008Q3

REPORT INFORMATION
  Report Type: 
  Country: None (occurrence: None)
  Receive Date: 20080925
  Receipt Date: 20080920
  Transmission Date: 20090109
  Serious: Yes (Hospitalization)
  Sender: FDA-Public Use
  Company Number: 2008SP003219

PATIENT
  Age: 51 Year
  Sex: Male
  Weight: 78.0187 kg

DRUGS (2)
  1. PEG-INTRON [Suspect]
     Indication: HEPATITIS C
     Dosage: SC
     Route: 058
     Dates: start: 20071214, end: 20080104
  2. RIBAVIRIN [Suspect]
     Indication: HEPATITIS C
     Dosage: PO
     Route: 048
     Dates: start: 20071214, end: 20080104

REACTIONS (13)
  - ABDOMINAL DISTENSION [None]
  - ABDOMINAL PAIN UPPER [None]
  - ANXIETY [None]
  - BLOOD POTASSIUM DECREASED [None]
  - BLOOD PRESSURE DECREASED [None]
  - DEHYDRATION [None]
  - DRUG SCREEN POSITIVE [None]
  - FALL [None]
  - HEART RATE DECREASED [None]
  - HYPOPHAGIA [None]
  - LEGAL PROBLEM [None]
  - SYNCOPE [None]
  - WEIGHT DECREASED [None]
